FAERS Safety Report 19461160 (Version 1)
Quarter: 2021Q2

REPORT INFORMATION
  Report Type: Spontaneous
  Country: IT (occurrence: IT)
  Receive Date: 20210625
  Receipt Date: 20210625
  Transmission Date: 20210717
  Serious: Yes (Hospitalization, Other)
  Sender: FDA-Public Use
  Company Number: IT-STRIDES ARCOLAB LIMITED-2021SP006787

PATIENT
  Age: 76 Year
  Sex: Male

DRUGS (9)
  1. AMOXICILLIN. [Interacting]
     Active Substance: AMOXICILLIN
     Indication: TOOTHACHE
  2. IBUPROFEN. [Suspect]
     Active Substance: IBUPROFEN
     Indication: GINGIVITIS
     Dosage: 600 MILLIGRAM, EVERY 8 HOURS, HIGH DOSE
     Route: 065
  3. CLAVULANIC ACID [Concomitant]
     Active Substance: CLAVULANIC ACID
     Indication: TOOTHACHE
  4. AMOXICILLIN. [Interacting]
     Active Substance: AMOXICILLIN
     Indication: TOOTH INFECTION
     Dosage: 500 MILLIGRAM, EVERY 12 HRS
     Route: 048
  5. IBUPROFEN. [Interacting]
     Active Substance: IBUPROFEN
     Indication: TOOTH INFECTION
  6. AMOXICILLIN. [Interacting]
     Active Substance: AMOXICILLIN
     Indication: GINGIVITIS
     Dosage: 1 GRAM, EVERY 8 HOURS (INCREASED)
     Route: 048
  7. CLAVULANIC ACID [Concomitant]
     Active Substance: CLAVULANIC ACID
     Indication: TOOTH INFECTION
     Dosage: UNK
     Route: 065
  8. CLAVULANIC ACID [Concomitant]
     Active Substance: CLAVULANIC ACID
     Indication: GINGIVITIS
  9. IBUPROFEN. [Interacting]
     Active Substance: IBUPROFEN
     Indication: TOOTHACHE

REACTIONS (6)
  - Meningitis aseptic [Recovered/Resolved]
  - Condition aggravated [Recovered/Resolved]
  - Encephalitis [Recovered/Resolved]
  - Pleocytosis [Recovered/Resolved]
  - Off label use [Unknown]
  - Drug interaction [Recovered/Resolved]
